FAERS Safety Report 21138963 (Version 1)
Quarter: 2022Q3

REPORT INFORMATION
  Report Type: Spontaneous
  Country: US (occurrence: US)
  Receive Date: 20220727
  Receipt Date: 20220727
  Transmission Date: 20221027
  Serious: No
  Sender: FDA-Public Use
  Company Number: US-Blueprint Medicines Corporation-292

PATIENT
  Age: 43 Year
  Sex: Female

DRUGS (1)
  1. AYVAKIT [Suspect]
     Active Substance: AVAPRITINIB
     Indication: Systemic mastocytosis
     Route: 048
     Dates: start: 20220607

REACTIONS (4)
  - Lacrimation increased [Unknown]
  - Periorbital swelling [Recovering/Resolving]
  - Hair colour changes [Unknown]
  - Fatigue [Unknown]

NARRATIVE: CASE EVENT DATE: 20220719
